FAERS Safety Report 10039135 (Version 1)
Quarter: 2014Q1

REPORT INFORMATION
  Report Type: Spontaneous
  Country: MX (occurrence: MX)
  Receive Date: 20140326
  Receipt Date: 20140326
  Transmission Date: 20141002
  Serious: Yes (Death)
  Sender: FDA-Public Use
  Company Number: MX-UCBSA-115560

PATIENT
  Age: 85 Year
  Sex: Male
  Weight: 50 kg

DRUGS (3)
  1. NEUBRENZA [Suspect]
     Indication: PARKINSON^S DISEASE
     Route: 061
     Dates: start: 2008, end: 20140317
  2. LEVODOPAR [Concomitant]
     Indication: PARKINSON^S DISEASE
     Dates: start: 2001, end: 2014
  3. AKATINOL [Concomitant]
     Indication: PARKINSON^S DISEASE
     Dates: start: 2001, end: 2014

REACTIONS (1)
  - Urinary tract infection [Fatal]
